FAERS Safety Report 11455862 (Version 2)
Quarter: 2015Q3

REPORT INFORMATION
  Report Type: Spontaneous
  Country: IT (occurrence: IT)
  Receive Date: 20150903
  Receipt Date: 20150929
  Transmission Date: 20151125
  Serious: Yes (Death, Life-Threatening)
  Sender: FDA-Public Use
  Company Number: IT-ASTRAZENECA-2015SE83680

PATIENT
  Age: 19235 Day
  Sex: Male
  Weight: 130 kg

DRUGS (3)
  1. ZESTRIL [Concomitant]
     Active Substance: LISINOPRIL
     Indication: ESSENTIAL HYPERTENSION
     Route: 048
  2. METFORMIN [Concomitant]
     Active Substance: METFORMIN HYDROCHLORIDE
     Route: 048
  3. BYDUREON [Suspect]
     Active Substance: EXENATIDE
     Indication: DIABETES MELLITUS
     Route: 058
     Dates: start: 20150619, end: 20150820

REACTIONS (5)
  - Acute respiratory failure [Fatal]
  - Acute kidney injury [Fatal]
  - Circulatory collapse [Fatal]
  - Multi-organ failure [Not Recovered/Not Resolved]
  - Pancreatitis acute [Fatal]

NARRATIVE: CASE EVENT DATE: 20150822
